FAERS Safety Report 14939969 (Version 1)
Quarter: 2018Q2

REPORT INFORMATION
  Report Type: Spontaneous
  Country: US (occurrence: US)
  Receive Date: 20180525
  Receipt Date: 20180525
  Transmission Date: 20180711
  Serious: No
  Sender: FDA-Public Use
  Company Number: US-UNITED THERAPEUTICS-UNT-2018-007293

PATIENT
  Age: 51 Year
  Sex: Female
  Weight: 87.98 kg

DRUGS (1)
  1. REMODULIN [Suspect]
     Active Substance: TREPROSTINIL
     Indication: PULMONARY HYPERTENSION
     Dosage: 0.013 ?G/KG, CONTINUING
     Route: 058
     Dates: start: 20180413

REACTIONS (8)
  - Vomiting [Unknown]
  - Malaise [Unknown]
  - Eating disorder [Unknown]
  - Nausea [Unknown]
  - Diarrhoea [Unknown]
  - Asthenia [Unknown]
  - Device issue [Unknown]
  - Weight decreased [Unknown]

NARRATIVE: CASE EVENT DATE: 201804
